FAERS Safety Report 9162278 (Version 1)
Quarter: 2013Q1

REPORT INFORMATION
  Report Type: Spontaneous
  Country: US (occurrence: None)
  Receive Date: 20130222
  Receipt Date: 20130222
  Transmission Date: 20140127
  Serious: Yes (Other)
  Sender: FDA-Public Use
  Company Number: ACO_24132_2010

PATIENT
  Age: 39 Year
  Sex: Female
  Weight: 72 kg

DRUGS (9)
  1. AMPYRA (DALFAMPRIDINE) TABLET, 10MG [Suspect]
     Indication: GAIT DISTURBANCE
     Route: 048
     Dates: start: 201007, end: 20100823
  2. VITAMIN B12 (VITAMIN B12 NOS) [Concomitant]
  3. VITAMIN B COMPLEX (VITAMIN B COMPLEX) [Concomitant]
  4. MULTIVITAMIN (VITAMINS NOS) [Concomitant]
  5. VITAMIN B6 (PYRIDOXINE HYDROCHLORIDE) [Concomitant]
  6. CALCIUM (CALCIUM) [Concomitant]
  7. COPAXONE (GLATIRAMER ACETATE) [Concomitant]
  8. WELLBUTRIN (BUPROPION HYDROCHLORIDE) [Concomitant]
  9. LEXAPRO (ESCITALOPRAM OXALATE) [Concomitant]

REACTIONS (4)
  - Convulsion [None]
  - Accidental overdose [None]
  - Laceration [None]
  - Syncope [None]
